FAERS Safety Report 18462180 (Version 2)
Quarter: 2020Q4

REPORT INFORMATION
  Report Type: Spontaneous
  Country: DE (occurrence: DE)
  Receive Date: 20201104
  Receipt Date: 20201112
  Transmission Date: 20210114
  Serious: Yes (Life-Threatening, Hospitalization, Other)
  Sender: FDA-Public Use
  Company Number: DE-SA-2020SA304492

PATIENT

DRUGS (8)
  1. RAMIPRIL. [Interacting]
     Active Substance: RAMIPRIL
     Indication: HYPERTENSION
     Dosage: 2.5 MG (1 DF) , QD
  2. METFORMIN [Concomitant]
     Active Substance: METFORMIN HYDROCHLORIDE
     Indication: DIABETES MELLITUS
     Dosage: 500 MG, BID
  3. MARCUMAR [Concomitant]
     Active Substance: PHENPROCOUMON
     Indication: ANTICOAGULANT THERAPY
     Dosage: 3 MG, QD
  4. ALNA [Interacting]
     Active Substance: TAMSULOSIN HYDROCHLORIDE
     Indication: BENIGN PROSTATIC HYPERPLASIA
     Dosage: 0.4 MG, QD
  5. METOPROLOL SUCCINATE. [Concomitant]
     Active Substance: METOPROLOL SUCCINATE
     Indication: HYPERTENSION
     Dosage: 47.5 MG (1 DF), QD
  6. OMNIC [Suspect]
     Active Substance: TAMSULOSIN HYDROCHLORIDE
     Indication: BENIGN PROSTATIC HYPERPLASIA
     Dosage: 0.4 MG, QD
  7. ALLOPURINOL. [Interacting]
     Active Substance: ALLOPURINOL
     Indication: HYPERURICAEMIA
     Dosage: UNK
  8. TENSOFLUX [Interacting]
     Active Substance: AMILORIDE\BENDROFLUMETHIAZIDE
     Indication: HYPERTENSION
     Dosage: UNK

REACTIONS (18)
  - Blister [Recovered/Resolved]
  - Self-medication [Recovered/Resolved]
  - Skin discolouration [Recovered/Resolved]
  - Leukocytosis [Recovered/Resolved]
  - Red blood cell sedimentation rate increased [Recovered/Resolved]
  - C-reactive protein increased [Recovered/Resolved]
  - Rash [Recovered/Resolved]
  - Pain [Recovered/Resolved]
  - Skin exfoliation [Recovered/Resolved]
  - Wound haemorrhage [Recovered/Resolved]
  - Drug interaction [Unknown]
  - Pustule [Recovered/Resolved]
  - Stevens-Johnson syndrome [Recovered/Resolved]
  - Malaise [Recovered/Resolved]
  - Toxic epidermal necrolysis [Recovered/Resolved]
  - Purpura [Recovered/Resolved]
  - Wound [Recovered/Resolved]
  - Gait disturbance [Recovered/Resolved]
